FAERS Safety Report 11977551 (Version 1)
Quarter: 2016Q1

REPORT INFORMATION
  Report Type: Report from Study
  Country: US (occurrence: US)
  Receive Date: 20160129
  Receipt Date: 20160129
  Transmission Date: 20160526
  Serious: Yes (Death)
  Sender: FDA-Public Use
  Company Number: US-ACTELION-A-US2015-128227

PATIENT
  Age: 69 Year
  Sex: Male
  Weight: 105.67 kg

DRUGS (5)
  1. VELETRI [Suspect]
     Active Substance: EPOPROSTENOL
     Indication: PULMONARY ARTERIAL HYPERTENSION
     Dosage: 7 NG/KG, PER MIN
     Route: 042
     Dates: start: 20151123
  2. VELETRI [Suspect]
     Active Substance: EPOPROSTENOL
     Dosage: 10 NG/KG, PER MIN
     Route: 042
     Dates: start: 20151123
  3. TYVASO [Suspect]
     Active Substance: TREPROSTINIL
     Indication: PULMONARY ARTERIAL HYPERTENSION
     Dosage: 18-54 MCG (3-9 BREATHS) QID
     Route: 055
     Dates: start: 20150408
  4. OPSUMIT [Concomitant]
     Active Substance: MACITENTAN
     Indication: PRODUCT USED FOR UNKNOWN INDICATION
     Route: 048
  5. ADCIRCA [Concomitant]
     Active Substance: TADALAFIL
     Dosage: UNK

REACTIONS (11)
  - Oropharyngeal pain [Unknown]
  - Tracheal disorder [Unknown]
  - Weight increased [Unknown]
  - Pain [Unknown]
  - Headache [Unknown]
  - Asthenia [Unknown]
  - Cough [Unknown]
  - Erythema [Unknown]
  - Sinusitis [Unknown]
  - Death [Fatal]
  - Nausea [Unknown]
